FAERS Safety Report 10057987 (Version 1)
Quarter: 2014Q2

REPORT INFORMATION
  Report Type: Spontaneous
  Country: US (occurrence: None)
  Receive Date: 20140403
  Receipt Date: 20140403
  Transmission Date: 20141212
  Serious: Yes (Life-Threatening)
  Sender: FDA-Public Use
  Company Number: None

PATIENT
  Age: 73 Year
  Sex: Male
  Weight: 142.9 kg

DRUGS (1)
  1. ENALAPRIL [Suspect]
     Indication: HYPERTENSION
     Dosage: 2.5 MG, EVERY DAY, PO
     Route: 048
     Dates: start: 20140307, end: 20140308

REACTIONS (2)
  - Angioedema [None]
  - Swollen tongue [None]
